FAERS Safety Report 8904257 (Version 1)
Quarter: 2012Q4

REPORT INFORMATION
  Report Type: 
  Country: US (occurrence: US)
  Receive Date: 20121112
  Receipt Date: 20121112
  Transmission Date: 20130627
  Serious: Yes (Hospitalization)
  Sender: FDA-Public Use
  Company Number: US-GLAXOSMITHKLINE-A0872134A

PATIENT
  Age: 71 Year
  Sex: Female

DRUGS (1)
  1. AVANDIA [Suspect]
     Indication: DIABETES MELLITUS
     Dosage: 4MG Twice per day
     Route: 048
     Dates: start: 2003, end: 2007

REACTIONS (13)
  - Renal failure [Not Recovered/Not Resolved]
  - Nephrotic syndrome [Unknown]
  - Cardiac failure [Unknown]
  - Myocardial infarction [Unknown]
  - Renal failure chronic [Unknown]
  - Cardiac disorder [Unknown]
  - Arteriosclerosis [Unknown]
  - Arterial disorder [Unknown]
  - Peripheral vascular disorder [Unknown]
  - Cardiac valve disease [Unknown]
  - Transient ischemic attack [Unknown]
  - Pleural effusion [Unknown]
  - Atrial fibrillation [Unknown]
